FAERS Safety Report 10652435 (Version 1)
Quarter: 2014Q4

REPORT INFORMATION
  Report Type: Spontaneous
  Country: US (occurrence: None)
  Receive Date: 20141211
  Receipt Date: 20141211
  Transmission Date: 20150529
  Serious: Yes (Hospitalization, Disabling, Other)
  Sender: FDA-Public Use
  Company Number: 2014SMT00129

PATIENT
  Age: 41 Year
  Sex: Male
  Weight: 97.5 kg

DRUGS (3)
  1. CHEMOTHERAPY [Suspect]
     Active Substance: UNSPECIFIED INGREDIENT
  2. UNSPECIFIED INSULIN [Concomitant]
     Active Substance: INSULIN NOS
  3. REGRANEX [Suspect]
     Active Substance: BECAPLERMIN
     Indication: DIABETIC FOOT
     Route: 061
     Dates: start: 2001, end: 2007

REACTIONS (6)
  - Skin ulcer [None]
  - Brain neoplasm malignant [None]
  - Haemodialysis [None]
  - Disability [None]
  - Renal injury [None]
  - Fistula [None]

NARRATIVE: CASE EVENT DATE: 200609
